FAERS Safety Report 9201112 (Version 2)
Quarter: 2013Q3

REPORT INFORMATION
  Report Type: Spontaneous
  Country: US (occurrence: US)
  Receive Date: 20130401
  Receipt Date: 20130927
  Transmission Date: 20140515
  Serious: Yes (Hospitalization, Other)
  Sender: FDA-Public Use
  Company Number: US-009507513-1303USA012852

PATIENT
  Sex: Female

DRUGS (7)
  1. AZASITE [Suspect]
     Indication: OCULAR ROSACEA
     Dosage: 1 DROP IN EACH EYE AT BEDTIME
     Route: 047
  2. COUMADIN [Concomitant]
  3. TOPROL XL TABLETS [Concomitant]
  4. ASPIRIN [Concomitant]
  5. VITAMINS (UNSPECIFIED) [Concomitant]
  6. LIPITOR [Concomitant]
  7. CHLOROTHIAZIDE [Concomitant]

REACTIONS (7)
  - Aortic valve replacement [Not Recovered/Not Resolved]
  - Aortic surgery [Not Recovered/Not Resolved]
  - Breast operation [Not Recovered/Not Resolved]
  - Breast cancer [Not Recovered/Not Resolved]
  - Rhinorrhoea [Not Recovered/Not Resolved]
  - Incorrect drug administration duration [Unknown]
  - Drug administration error [Unknown]
